FAERS Safety Report 9958739 (Version 1)
Quarter: 2014Q1

REPORT INFORMATION
  Report Type: Spontaneous
  Country: TR (occurrence: None)
  Receive Date: 20140228
  Receipt Date: 20140228
  Transmission Date: 20141002
  Serious: Yes (Hospitalization)
  Sender: FDA-Public Use
  Company Number: FK201400572

PATIENT
  Sex: Female

DRUGS (2)
  1. VALPROATE [Suspect]
     Indication: PRODUCT USED FOR UNKNOWN INDICATION
     Route: 064
  2. LAMOTRIGINE (LAMOTRIGINE) [Suspect]
     Indication: PRODUCT USED FOR UNKNOWN INDICATION
     Route: 064

REACTIONS (7)
  - Hypotonia [None]
  - Feeding disorder neonatal [None]
  - Hyporeflexia [None]
  - Poor sucking reflex [None]
  - Drug interaction [None]
  - Maternal drugs affecting foetus [None]
  - Caesarean section [None]
